FAERS Safety Report 23826944 (Version 1)
Quarter: 2024Q2

REPORT INFORMATION
  Report Type: Spontaneous
  Country: US (occurrence: None)
  Receive Date: 20240506
  Receipt Date: 20240506
  Transmission Date: 20240716
  Serious: No
  Sender: FDA-Public Use
  Company Number: None

PATIENT
  Age: 73 Year
  Sex: Male

DRUGS (16)
  1. TASIGNA [Suspect]
     Active Substance: NILOTINIB
     Indication: Product used for unknown indication
     Dosage: FREQUENCY : TWICE A DAY;?
     Route: 048
     Dates: start: 20230810
  2. METOPROLOL SUCCINATE [Concomitant]
     Active Substance: METOPROLOL SUCCINATE
  3. FLUOXETINE [Concomitant]
     Active Substance: FLUOXETINE HYDROCHLORIDE
  4. SERTRALINE [Concomitant]
     Active Substance: SERTRALINE HYDROCHLORIDE
  5. LINZESS [Concomitant]
     Active Substance: LINACLOTIDE
  6. MELATONIN [Concomitant]
     Active Substance: MELATONIN
  7. PROBIOTIC COLON SUPPORT [Concomitant]
  8. NITROGLYCERIN [Concomitant]
     Active Substance: NITROGLYCERIN
  9. PEPTO-BISMOL [Concomitant]
     Active Substance: BISMUTH SUBSALICYLATE
  10. ALLOPURINOL [Concomitant]
     Active Substance: ALLOPURINOL
  11. CEPHALEXIN [Concomitant]
     Active Substance: CEPHALEXIN
  12. ASPIRIN [Concomitant]
     Active Substance: ASPIRIN
  13. LISINOPRIL [Concomitant]
     Active Substance: LISINOPRIL
  14. ATORVASTATIN [Concomitant]
     Active Substance: ATORVASTATIN
  15. FINASTERIDE [Concomitant]
     Active Substance: FINASTERIDE
  16. LOPERAMIDE [Concomitant]
     Active Substance: LOPERAMIDE

REACTIONS (1)
  - Cardiac disorder [None]

NARRATIVE: CASE EVENT DATE: 20240401
